FAERS Safety Report 25010629 (Version 2)
Quarter: 2025Q1

REPORT INFORMATION
  Report Type: Spontaneous
  Country: JP (occurrence: JP)
  Receive Date: 20250225
  Receipt Date: 20250305
  Transmission Date: 20250409
  Serious: Yes (Other)
  Sender: MALLINCKRODT
  Company Number: JP-MALLINCKRODT-MNK202501094

PATIENT

DRUGS (1)
  1. NITRIC OXIDE [Suspect]
     Active Substance: NITRIC OXIDE
     Indication: Pulmonary hypertension
     Route: 055

REACTIONS (1)
  - Acute kidney injury [Recovered/Resolved]
